FAERS Safety Report 5416752-8 (Version None)
Quarter: 2007Q3

REPORT INFORMATION
  Report Type: 
  Country: None (occurrence: None)
  Receive Date: 20070816
  Receipt Date: 20070808
  Transmission Date: 20080115
  Serious: Yes (Other)
  Sender: FDA-Public Use
  Company Number: A0624876A

PATIENT
  Age: 60 Year
  Sex: Male

DRUGS (2)
  1. NICORETTE [Suspect]
     Dosage: 2MG SEE DOSAGE TEXT
     Route: 002
  2. NO CONCURRENT MEDICATION [Concomitant]

REACTIONS (3)
  - DEPENDENCE [None]
  - INTENTIONAL DRUG MISUSE [None]
  - PHARMACEUTICAL PRODUCT COMPLAINT [None]
